FAERS Safety Report 5968915-0 (Version None)
Quarter: 2008Q4

REPORT INFORMATION
  Report Type: 
  Country: None (occurrence: None)
  Receive Date: 20081125
  Receipt Date: 20081125
  Transmission Date: 20090506
  Serious: No
  Sender: FDA-Public Use
  Company Number: None

PATIENT
  Age: 49 Year
  Sex: Female
  Weight: 56.6996 kg

DRUGS (2)
  1. LYRICA [Suspect]
     Indication: INTERVERTEBRAL DISC PROTRUSION
     Dosage: 1 TABLET 3 TIMES DAILY PO
     Route: 048
     Dates: start: 20080818, end: 20080919
  2. LYRICA [Suspect]
     Indication: NERVE INJURY
     Dosage: 1 TABLET 3 TIMES DAILY PO
     Route: 048
     Dates: start: 20080818, end: 20080919

REACTIONS (9)
  - DIARRHOEA [None]
  - DIPLOPIA [None]
  - HEADACHE [None]
  - HYPOAESTHESIA [None]
  - MEMORY IMPAIRMENT [None]
  - SPEECH DISORDER [None]
  - SWELLING FACE [None]
  - VISION BLURRED [None]
  - VOMITING [None]
